FAERS Safety Report 4314448-7 (Version None)
Quarter: 2004Q1

REPORT INFORMATION
  Report Type: 
  Country: None (occurrence: None)
  Receive Date: 20040309
  Receipt Date: 20040202
  Transmission Date: 20041129
  Serious: Yes (Death, Hospitalization)
  Sender: FDA-Public Use
  Company Number: SE-ROCHE-357838

PATIENT
  Age: 69 Year
  Sex: Male
  Weight: 81 kg

DRUGS (4)
  1. INTERFERON ALFA-2A [Suspect]
     Indication: LYMPHOMA
     Route: 058
     Dates: start: 20031027, end: 20031031
  2. RITUXIMAB [Suspect]
     Indication: LYMPHOMA
     Dosage: ACTUAL DOSE RECEIVED WAS 694 MG WEEKLY.
     Route: 042
     Dates: start: 20031103, end: 20031203
  3. ACETYLSALICYLIC ACID [Concomitant]
     Route: 048
     Dates: start: 19990615, end: 20040130
  4. UNKNOWN HYPERTENSION DRUG [Concomitant]
     Indication: HYPERTENSION

REACTIONS (4)
  - CARDIAC ARREST [None]
  - HAEMORRHAGE INTRACRANIAL [None]
  - NEUROLOGICAL SYMPTOM [None]
  - THROMBOTIC THROMBOCYTOPENIC PURPURA [None]
